FAERS Safety Report 8076373-8 (Version None)
Quarter: 2012Q1

REPORT INFORMATION
  Report Type: 
  Country: None (occurrence: None)
  Receive Date: 20120127
  Receipt Date: 20120127
  Transmission Date: 20120608
  Serious: Yes (Hospitalization)
  Sender: FDA-Public Use
  Company Number: None

PATIENT
  Age: 58 Year
  Sex: Male
  Weight: 98.883 kg

DRUGS (2)
  1. EFFIENT [Concomitant]
     Indication: ATRIAL FIBRILLATION
  2. COUMADIN [Suspect]
     Indication: CORONARY ARTERY DISEASE
     Route: 048

REACTIONS (4)
  - ANAEMIA [None]
  - CHEST PAIN [None]
  - LOWER GASTROINTESTINAL HAEMORRHAGE [None]
  - DYSPNOEA [None]
